FAERS Safety Report 16420568 (Version 1)
Quarter: 2019Q2

REPORT INFORMATION
  Report Type: Spontaneous
  Country: US (occurrence: US)
  Receive Date: 20190506
  Receipt Date: 20190506
  Transmission Date: 20190713
  Serious: No
  Sender: FDA-Public Use
  Company Number: None

PATIENT
  Age: 46 Year
  Sex: Female

DRUGS (3)
  1. HYDROXYCUT MAX RAPID RELEASE LIQUID CAPSULES [Suspect]
     Active Substance: DIETARY SUPPLEMENT
  2. HYDROXYCUT DRINK MIX POWDER PACKETS [Suspect]
     Active Substance: DIETARY SUPPLEMENT
  3. LEVOTHYROXINE. [Suspect]
     Active Substance: LEVOTHYROXINE
     Indication: THYROID DISORDER

REACTIONS (8)
  - Jaundice [None]
  - Abdominal pain [None]
  - Chromaturia [None]
  - Nausea [None]
  - Fatigue [None]
  - Vomiting [None]
  - Dehydration [None]
  - Abdominal pain upper [None]
